FAERS Safety Report 15675059 (Version 1)
Quarter: 2018Q4

REPORT INFORMATION
  Report Type: Spontaneous
  Country: US (occurrence: US)
  Receive Date: 20181130
  Receipt Date: 20181130
  Transmission Date: 20190205
  Serious: No
  Sender: FDA-Public Use
  Company Number: US-PFIZER INC-2018390356

PATIENT
  Age: 28 Year
  Sex: Female
  Weight: 63.45 kg

DRUGS (4)
  1. METOPROLOL. [Concomitant]
     Active Substance: METOPROLOL
     Indication: HEART RATE IRREGULAR
     Dosage: 25 MG, DAILY (HALF IN THE MORNING AND HALF AT NIGHT)
     Route: 048
     Dates: start: 201801
  2. ZYVOX [Suspect]
     Active Substance: LINEZOLID
     Indication: ENDOCARDITIS
     Dosage: 600 MG, TWICE A DAY
     Route: 048
     Dates: start: 201712
  3. SPIRONOLACTONE. [Concomitant]
     Active Substance: SPIRONOLACTONE
     Indication: FLUID RETENTION
     Dosage: 25 MG, DAILY
     Route: 048
     Dates: start: 201801
  4. ZYVOX [Suspect]
     Active Substance: LINEZOLID
     Indication: LUNG INFECTION

REACTIONS (3)
  - Product use in unapproved indication [Unknown]
  - Product prescribing issue [Unknown]
  - Treatment noncompliance [Unknown]

NARRATIVE: CASE EVENT DATE: 201712
